FAERS Safety Report 25585541 (Version 1)
Quarter: 2025Q3

REPORT INFORMATION
  Report Type: Spontaneous
  Country: US (occurrence: None)
  Receive Date: 20250718
  Receipt Date: 20250718
  Transmission Date: 20251021
  Serious: Yes (Death)
  Sender: FDA-CTU
  Company Number: None

PATIENT
  Age: 68 Year
  Sex: Female

DRUGS (2)
  1. OZEMPIC [Suspect]
     Active Substance: SEMAGLUTIDE
     Indication: Diabetes mellitus
     Dosage: OTHER QUANTITY : 0.5 MG;?OTHER FREQUENCY : ONCE A WEEK;?
     Route: 058
     Dates: start: 20240601, end: 20240827
  2. TYLENOL [Concomitant]
     Active Substance: ACETAMINOPHEN

REACTIONS (6)
  - Peripheral swelling [None]
  - Pain in extremity [None]
  - Fall [None]
  - Syncope [None]
  - Deep vein thrombosis [None]
  - Cerebrovascular accident [None]

NARRATIVE: CASE EVENT DATE: 20240827
